FAERS Safety Report 6657891-3 (Version None)
Quarter: 2010Q1

REPORT INFORMATION
  Report Type: 
  Country: None (occurrence: None)
  Receive Date: 20100330
  Receipt Date: 20100319
  Transmission Date: 20100710
  Serious: Yes (Death, Other)
  Sender: FDA-Public Use
  Company Number: NL-ROCHE-692396

PATIENT
  Sex: Female

DRUGS (1)
  1. AVASTIN [Suspect]
     Route: 042

REACTIONS (2)
  - DISEASE PROGRESSION [None]
  - PULMONARY EMBOLISM [None]
